FAERS Safety Report 5818420-7 (Version None)
Quarter: 2008Q3

REPORT INFORMATION
  Report Type: 
  Country: None (occurrence: None)
  Receive Date: 20080716
  Receipt Date: 20080702
  Transmission Date: 20090109
  Serious: Yes (Other)
  Sender: FDA-Public Use
  Company Number: 8034145

PATIENT

DRUGS (6)
  1. CETIRIZINE HCL [Suspect]
     Indication: HYPERSENSITIVITY
     Dosage: TRP
     Route: 064
  2. PREDNISOLONE [Suspect]
     Indication: BILIARY CIRRHOSIS PRIMARY
     Dosage: TRP
     Route: 064
  3. PREDNISOLONE [Suspect]
     Indication: CHOLANGITIS SCLEROSING
     Dosage: TRP
     Route: 064
  4. URSODIOL [Concomitant]
  5. BUDESONIDE [Concomitant]
  6. COLESTYRAMINE [Concomitant]

REACTIONS (4)
  - ATRIAL SEPTAL DEFECT [None]
  - MATERNAL DRUGS AFFECTING FOETUS [None]
  - PREMATURE BABY [None]
  - SMALL FOR DATES BABY [None]
